FAERS Safety Report 7942853-6 (Version None)
Quarter: 2011Q4

REPORT INFORMATION
  Report Type: 
  Country: None (occurrence: None)
  Receive Date: 20111122
  Receipt Date: 20110720
  Transmission Date: 20120403
  Serious: No
  Sender: FDA-Public Use
  Company Number: PHHY2011US65598

PATIENT
  Age: 26 Year
  Sex: Female
  Weight: 119.7 kg

DRUGS (2)
  1. GILENYA [Suspect]
     Dosage: 0.5 MG, EVERY DAY, ORAL
     Route: 048
  2. BACLOFEN [Concomitant]

REACTIONS (2)
  - FATIGUE [None]
  - VISION BLURRED [None]
